FAERS Safety Report 25013534 (Version 2)
Quarter: 2025Q1

REPORT INFORMATION
  Report Type: Report from Study
  Country: US (occurrence: US)
  Receive Date: 20250226
  Receipt Date: 20250319
  Transmission Date: 20250409
  Serious: Yes (Other)
  Sender: ALEXION PHARMACEUTICALS
  Company Number: US-AstraZeneca-CH-00811882A

PATIENT
  Age: 68 Year

DRUGS (2)
  1. ACALABRUTINIB [Suspect]
     Active Substance: ACALABRUTINIB
     Indication: Chronic lymphocytic leukaemia
     Dosage: 100 MILLIGRAM, BID
  2. LEVETIRACETAM [Concomitant]
     Active Substance: LEVETIRACETAM
     Indication: Central nervous system function test abnormal
     Dosage: UNK, QD
     Route: 065

REACTIONS (5)
  - Seizure [Unknown]
  - Cerebral disorder [Unknown]
  - Pain [Unknown]
  - Arthritis [Unknown]
  - Decreased activity [Unknown]
